FAERS Safety Report 19583743 (Version 22)
Quarter: 2025Q2

REPORT INFORMATION
  Report Type: Spontaneous
  Country: IN (occurrence: IN)
  Receive Date: 20210720
  Receipt Date: 20250609
  Transmission Date: 20250717
  Serious: Yes (Other)
  Sender: PFIZER
  Company Number: IN-PFIZER INC-2021087068

PATIENT
  Age: 76 Year
  Sex: Female

DRUGS (13)
  1. PALBOCICLIB [Suspect]
     Active Substance: PALBOCICLIB
     Indication: Breast cancer metastatic
     Route: 048
     Dates: start: 20200205
  2. PALBOCICLIB [Suspect]
     Active Substance: PALBOCICLIB
     Route: 048
     Dates: start: 20200806
  3. PALBOCICLIB [Suspect]
     Active Substance: PALBOCICLIB
     Route: 048
     Dates: end: 202304
  4. PALBOCICLIB [Suspect]
     Active Substance: PALBOCICLIB
     Route: 048
     Dates: start: 2023, end: 2023
  5. PALBOCICLIB [Suspect]
     Active Substance: PALBOCICLIB
     Route: 048
     Dates: start: 2023
  6. PALBOCICLIB [Suspect]
     Active Substance: PALBOCICLIB
     Route: 048
     Dates: end: 20240828
  7. PALBOCICLIB [Suspect]
     Active Substance: PALBOCICLIB
     Route: 048
     Dates: start: 2024
  8. PALBOCICLIB [Suspect]
     Active Substance: PALBOCICLIB
     Route: 048
  9. PALBOCICLIB [Suspect]
     Active Substance: PALBOCICLIB
     Route: 048
  10. LETROZOLE [Concomitant]
     Active Substance: LETROZOLE
     Dosage: 2.5 MG, 1X/DAY (HS X 28 DAYS X 3 MONTHS)
     Dates: start: 20200205
  11. ZOLASTA [Concomitant]
     Dates: start: 20200205
  12. CALCIUM CARBONATE\CHOLECALCIFEROL [Concomitant]
     Active Substance: CALCIUM CARBONATE\CHOLECALCIFEROL
     Dosage: 500 MG, 1X/DAY (28 DAYS X 3 MONTHS)
  13. LETROZOLE [Concomitant]
     Active Substance: LETROZOLE
     Indication: Breast cancer metastatic
     Dates: start: 202002

REACTIONS (14)
  - Anaemia [Not Recovered/Not Resolved]
  - Faecal occult blood positive [Unknown]
  - Pancytopenia [Unknown]
  - Myelosuppression [Unknown]
  - Nasopharyngitis [Recovered/Resolved]
  - Weight increased [Unknown]
  - White blood cell count decreased [Unknown]
  - Fatigue [Unknown]
  - Pallor [Unknown]
  - Glycosylated haemoglobin increased [Unknown]
  - Full blood count abnormal [Unknown]
  - Mean platelet volume decreased [Unknown]
  - Off label use [Unknown]
  - Product use issue [Unknown]

NARRATIVE: CASE EVENT DATE: 20200226
